FAERS Safety Report 15667681 (Version 1)
Quarter: 2018Q4

REPORT INFORMATION
  Report Type: Spontaneous
  Country: US (occurrence: US)
  Receive Date: 20181128
  Receipt Date: 20181128
  Transmission Date: 20190205
  Serious: No
  Sender: FDA-Public Use
  Company Number: US-LEADING PHARMA, LLC-2059376

PATIENT
  Age: 79 Year
  Sex: Male

DRUGS (1)
  1. LORAZEPAM. [Suspect]
     Active Substance: LORAZEPAM
     Indication: ANXIETY
     Route: 048

REACTIONS (1)
  - Therapeutic product ineffective [Recovered/Resolved]
